FAERS Safety Report 20379649 (Version 1)
Quarter: 2022Q1

REPORT INFORMATION
  Report Type: Spontaneous
  Country: US (occurrence: None)
  Receive Date: 20220126
  Receipt Date: 20220126
  Transmission Date: 20220423
  Serious: No
  Sender: FDA-Public Use
  Company Number: None

PATIENT
  Age: 54 Year
  Sex: Male

DRUGS (1)
  1. AMBRISENTAN [Suspect]
     Active Substance: AMBRISENTAN
     Indication: Pulmonary arterial hypertension
     Dosage: FREQUENCY : DAILY;?
     Route: 048
     Dates: start: 20211217, end: 20220125

REACTIONS (8)
  - Feeling abnormal [None]
  - Asthenia [None]
  - Dizziness [None]
  - Palpitations [None]
  - Headache [None]
  - Dyspnoea [None]
  - Job dissatisfaction [None]
  - Drug intolerance [None]

NARRATIVE: CASE EVENT DATE: 20220125
